FAERS Safety Report 5625981-X (Version None)
Quarter: 2008Q1

REPORT INFORMATION
  Report Type: 
  Country: None (occurrence: None)
  Receive Date: 20080211
  Receipt Date: 20080205
  Transmission Date: 20080703
  Serious: Yes (Death, Life-Threatening, Hospitalization)
  Sender: FDA-Public Use
  Company Number: MEDI-0006511

PATIENT
  Age: 5 Month
  Sex: Male

DRUGS (2)
  1. SYNAGIS [Suspect]
     Indication: ANTIVIRAL PROPHYLAXIS
     Dosage: 60 MG, INTRAMUSCULAR; 15 MG, INTRAMUSCULAR
     Route: 030
     Dates: start: 20071113, end: 20071212
  2. SYNAGIS [Suspect]
     Indication: ANTIVIRAL PROPHYLAXIS
     Dosage: 60 MG, INTRAMUSCULAR; 15 MG, INTRAMUSCULAR
     Route: 030
     Dates: start: 20071113

REACTIONS (2)
  - BRAIN DEATH [None]
  - CARDIO-RESPIRATORY ARREST [None]
